FAERS Safety Report 5410351-X (Version None)
Quarter: 2007Q3

REPORT INFORMATION
  Report Type: 
  Country: None (occurrence: None)
  Receive Date: 20070808
  Receipt Date: 20070801
  Transmission Date: 20080115
  Serious: Yes (Other)
  Sender: FDA-Public Use
  Company Number: 2007SP015638

PATIENT
  Age: 58 Year
  Sex: Male

DRUGS (4)
  1. INTRON A [Suspect]
     Indication: HEPATITIS C
     Dosage: 10 MIU; ; IM
     Route: 030
     Dates: start: 20050105, end: 20050322
  2. P MAGEN [Concomitant]
  3. CALONAL [Concomitant]
  4. LENDORMIN [Concomitant]

REACTIONS (5)
  - HEADACHE [None]
  - HYPOAESTHESIA [None]
  - HYPOGLYCAEMIA [None]
  - PYREXIA [None]
  - THIRST [None]
